FAERS Safety Report 25274517 (Version 1)
Quarter: 2025Q2

REPORT INFORMATION
  Report Type: Report from Study
  Country: CA (occurrence: CA)
  Receive Date: 20250506
  Receipt Date: 20250506
  Transmission Date: 20250716
  Serious: Yes (Hospitalization)
  Sender: ABBVIE
  Company Number: CA-ABBVIE-6264044

PATIENT
  Age: 37 Year
  Sex: Female

DRUGS (2)
  1. VENCLEXTA [Suspect]
     Active Substance: VENETOCLAX
     Indication: Acute myeloid leukaemia
     Dosage: VENCLEXTA 100 MG/ 400MG PO DAILY X 28 DAYS
     Route: 048
     Dates: start: 20240922
  2. AZACITIDINE [Concomitant]
     Active Substance: AZACITIDINE
     Indication: Chemotherapy

REACTIONS (1)
  - Chemotherapy [Unknown]

NARRATIVE: CASE EVENT DATE: 20250101
